FAERS Safety Report 6712620-X (Version None)
Quarter: 2010Q2

REPORT INFORMATION
  Report Type: 
  Country: None (occurrence: None)
  Receive Date: 20100505
  Receipt Date: 20100505
  Transmission Date: 20101027
  Serious: Yes (Other)
  Sender: FDA-Public Use
  Company Number: None

PATIENT
  Age: 43 Year
  Sex: Female
  Weight: 70.3075 kg

DRUGS (2)
  1. LEVAQUIN [Suspect]
     Indication: URINARY TRACT INFECTION
     Dosage: 250 MG 2X DAY ORAL
     Route: 048
     Dates: start: 20091024, end: 20091103
  2. CIPRO [Suspect]
     Dosage: 500 MG 2X DAY ORAL
     Route: 048
     Dates: start: 20091014, end: 20091021

REACTIONS (8)
  - BURNING SENSATION [None]
  - DEPERSONALISATION [None]
  - DEPRESSION [None]
  - MUSCLE CONTRACTIONS INVOLUNTARY [None]
  - MUSCLE TWITCHING [None]
  - NERVE INJURY [None]
  - NEURALGIA [None]
  - SENSORY LOSS [None]
